FAERS Safety Report 21932506 (Version 3)
Quarter: 2024Q2

REPORT INFORMATION
  Report Type: Spontaneous
  Country: US (occurrence: US)
  Receive Date: 20230131
  Receipt Date: 20240412
  Transmission Date: 20240716
  Serious: Yes (Hospitalization, Other)
  Sender: FDA-Public Use
  Company Number: US-AMNEAL PHARMACEUTICALS-2023-AMRX-00272

PATIENT
  Age: 73 Year
  Sex: Male

DRUGS (7)
  1. BACLOFEN [Suspect]
     Active Substance: BACLOFEN
     Indication: Product used for unknown indication
     Dosage: 285MCG/ML, 214.12MCG/DAY
     Route: 065
     Dates: start: 20041006
  2. BUPIVACAINE [Suspect]
     Active Substance: BUPIVACAINE
     Indication: Product used for unknown indication
     Dosage: 10 MG/ML
     Route: 065
  3. BUPIVACAINE [Suspect]
     Active Substance: BUPIVACAINE
     Dosage: 6 MG/ML, 4.5078MG/DAY
     Route: 065
  4. MARCAINE WITH EPINEPHRINE [BUPIVACAINE HYDROCHLORIDE;EPINEPHRINE BITAR [Concomitant]
     Indication: Anaesthesia
     Dosage: 0.5%
     Route: 007
  5. VANCOMYCIN HYDROCHLORIDE [Concomitant]
     Active Substance: VANCOMYCIN HYDROCHLORIDE
     Indication: Infection prophylaxis
     Dosage: 1 G PER I L
     Route: 065
  6. HYDROMORPHONE [Concomitant]
     Active Substance: HYDROMORPHONE
     Indication: Product used for unknown indication
     Dosage: 1.8 MILLIGRAM, QD
     Route: 037
  7. MORPHINE [Concomitant]
     Active Substance: MORPHINE
     Indication: Product used for unknown indication
     Dosage: 1.6 MG/ML, 1.2021MG/DAY
     Route: 065

REACTIONS (12)
  - Device occlusion [Unknown]
  - Device malfunction [Unknown]
  - Complication associated with device [Unknown]
  - Sciatica [Unknown]
  - Sensory overload [Unknown]
  - Feeling abnormal [Unknown]
  - Back pain [Unknown]
  - Pain [Unknown]
  - Urinary retention [Unknown]
  - Hallucination [Unknown]
  - Drug withdrawal syndrome [Unknown]
  - Device issue [Unknown]

NARRATIVE: CASE EVENT DATE: 20220801
